FAERS Safety Report 24040731 (Version 3)
Quarter: 2024Q3

REPORT INFORMATION
  Report Type: Spontaneous
  Country: HU (occurrence: HU)
  Receive Date: 20240702
  Receipt Date: 20240820
  Transmission Date: 20241017
  Serious: Yes (Hospitalization)
  Sender: ABBVIE
  Company Number: HU-ABBVIE-5821358

PATIENT
  Age: 60 Year
  Sex: Female

DRUGS (1)
  1. RINVOQ [Suspect]
     Active Substance: UPADACITINIB
     Indication: Arthropathy
     Dosage: FORM STRENGTH: 15 MILLIGRAM, LAST ADMIN DATE 2024
     Route: 048
     Dates: start: 20240404

REACTIONS (3)
  - Coordination abnormal [Unknown]
  - Hypoaesthesia [Unknown]
  - Arrhythmogenic right ventricular dysplasia [Unknown]

NARRATIVE: CASE EVENT DATE: 20240101
